FAERS Safety Report 19909833 (Version 4)
Quarter: 2021Q4

REPORT INFORMATION
  Report Type: Spontaneous
  Country: US (occurrence: US)
  Receive Date: 20211003
  Receipt Date: 20211125
  Transmission Date: 20220304
  Serious: No
  Sender: FDA-Public Use
  Company Number: NVSC2021US147650

PATIENT
  Sex: Female

DRUGS (2)
  1. COSENTYX [Suspect]
     Active Substance: SECUKINUMAB
     Indication: Psoriatic arthropathy
     Dosage: 300 MG, QMO
     Route: 058
  2. COSENTYX [Suspect]
     Active Substance: SECUKINUMAB
     Indication: Psoriasis

REACTIONS (12)
  - Glossodynia [Unknown]
  - Stomatitis [Unknown]
  - Plicated tongue [Unknown]
  - Taste disorder [Unknown]
  - Swollen tongue [Unknown]
  - Pain [Unknown]
  - Bacterial infection [Unknown]
  - Fungal infection [Unknown]
  - Herpes virus infection [Unknown]
  - Oral herpes [Unknown]
  - Drug ineffective [Unknown]
  - Psoriasis [Unknown]
